FAERS Safety Report 4898116-9 (Version None)
Quarter: 2006Q1

REPORT INFORMATION
  Report Type: 
  Country: None (occurrence: None)
  Receive Date: 20060201
  Receipt Date: 20051213
  Transmission Date: 20060701
  Serious: Yes (Life-Threatening, Hospitalization, Disabling)
  Sender: FDA-Public Use
  Company Number: US-JNJFOC-20041101108

PATIENT
  Sex: Female
  Weight: 85.73 kg

DRUGS (27)
  1. TOPAMAX [Suspect]
     Indication: DRUG THERAPY
     Route: 048
  2. TOPAMAX [Suspect]
     Indication: BIPOLAR DISORDER
     Route: 048
  3. TOPAMAX [Suspect]
     Indication: MIGRAINE
     Route: 048
  4. TOPAMAX [Suspect]
     Route: 048
  5. SEROQUEL [Concomitant]
     Route: 048
  6. SEROQUEL [Concomitant]
     Route: 048
  7. PROZAC [Concomitant]
     Route: 048
  8. VICODIN [Concomitant]
     Route: 048
  9. VICODIN [Concomitant]
     Dosage: ONE TABLET EVERY 6 HOURS AS NEEDED
     Route: 048
  10. ATARAX [Concomitant]
     Indication: DRUG USE FOR UNKNOWN INDICATION
     Route: 065
  11. XANAX [Concomitant]
     Indication: DRUG USE FOR UNKNOWN INDICATION
     Route: 065
  12. PROTONIX [Concomitant]
     Indication: DRUG USE FOR UNKNOWN INDICATION
     Route: 065
  13. PRAVACHOL [Concomitant]
     Indication: DRUG USE FOR UNKNOWN INDICATION
     Route: 065
  14. ASPIRIN [Concomitant]
     Route: 048
  15. PREVACID [Concomitant]
     Route: 048
  16. LEVAQIUN [Concomitant]
     Route: 048
  17. LEVAQIUN [Concomitant]
     Route: 048
  18. LOPID [Concomitant]
     Route: 048
  19. NEXIUM [Concomitant]
     Route: 048
  20. VIOKASE [Concomitant]
     Dosage: WITH MEALS
     Route: 048
  21. ALBUTEROL SULFATE AUTOHALER [Concomitant]
  22. ADVAIR DISKUS 100/50 [Concomitant]
  23. ADVAIR DISKUS 100/50 [Concomitant]
  24. MYLICON [Concomitant]
     Dosage: AS NEEDED
  25. LACTULOSE [Concomitant]
     Indication: CONSTIPATION
     Dosage: 30 CC EVERY 4-6 HOURS AS NEEDED
  26. TIGAN [Concomitant]
     Indication: VOMITING
     Route: 048
  27. TIGAN [Concomitant]
     Indication: NAUSEA
     Dosage: AS NEEDED
     Route: 048

REACTIONS (7)
  - BENIGN NEOPLASM OF ADRENAL GLAND [None]
  - BLOOD AMYLASE INCREASED [None]
  - BLOOD TRIGLYCERIDES INCREASED [None]
  - DIABETES MELLITUS [None]
  - LIPASE INCREASED [None]
  - PAIN IN EXTREMITY [None]
  - PANCREATITIS [None]
